FAERS Safety Report 14769312 (Version 2)
Quarter: 2018Q3

REPORT INFORMATION
  Report Type: Report from Study
  Country: None (occurrence: US)
  Receive Date: 20180417
  Receipt Date: 20180808
  Transmission Date: 20181010
  Serious: Yes (Other)
  Sender: FDA-Public Use
  Company Number: US-ABBVIE-18K-163-2320956-00

PATIENT
  Age: 79 Year
  Sex: Male

DRUGS (1)
  1. DUOPA [Suspect]
     Active Substance: CARBIDOPA\LEVODOPA
     Indication: PARKINSON^S DISEASE
     Dosage: 100 ML
     Route: 050
     Dates: start: 20171001

REACTIONS (4)
  - Cataract [Recovered/Resolved]
  - Feeling abnormal [Unknown]
  - Speech disorder [Unknown]
  - Device issue [Unknown]

NARRATIVE: CASE EVENT DATE: 20180409
